FAERS Safety Report 8191229-8 (Version None)
Quarter: 2012Q1

REPORT INFORMATION
  Report Type: 
  Country: None (occurrence: None)
  Receive Date: 20120307
  Receipt Date: 20120228
  Transmission Date: 20120608
  Serious: Yes (Hospitalization)
  Sender: FDA-Public Use
  Company Number: US-ROXANE LABORATORIES, INC.-2012-RO-00747RO

PATIENT
  Age: 20 Year
  Sex: Male

DRUGS (2)
  1. ALCOHOL [Suspect]
     Route: 048
  2. METHADON HCL TAB [Suspect]
     Route: 048

REACTIONS (9)
  - DEAFNESS TRANSITORY [None]
  - ACCIDENTAL OVERDOSE [None]
  - INTENTIONAL DRUG MISUSE [None]
  - TACHYCARDIA [None]
  - PNEUMONIA ASPIRATION [None]
  - SINUS TACHYCARDIA [None]
  - MIOSIS [None]
  - PALLOR [None]
  - RHABDOMYOLYSIS [None]
